FAERS Safety Report 4276519-3 (Version None)
Quarter: 2004Q1

REPORT INFORMATION
  Report Type: 
  Country: None (occurrence: None)
  Receive Date: 20040120
  Receipt Date: 20040109
  Transmission Date: 20041129
  Serious: Yes (Hospitalization)
  Sender: FDA-Public Use
  Company Number: US-JNJFOC-20040101856

PATIENT
  Age: 92 Year
  Sex: Male

DRUGS (7)
  1. VIADUR [Suspect]
     Indication: PROSTATE CANCER
     Dosage: 120 UG, 1 IN 1 DAY, SUBCUTANEOUS
     Route: 058
     Dates: start: 20030918
  2. DITROPAN XL (SUSTAINED RELEASE TABLETS) OXYBUTYNIN HYDROCHLORIDE [Concomitant]
  3. ALTACE [Concomitant]
  4. SINEMET [Concomitant]
  5. FOLIC ACID [Concomitant]
  6. ASPIRIN [Concomitant]
  7. REMINYL [Concomitant]

REACTIONS (1)
  - SYNCOPE [None]
